FAERS Safety Report 15980439 (Version 1)
Quarter: 2019Q1

REPORT INFORMATION
  Report Type: Report from Study
  Country: IT (occurrence: IT)
  Receive Date: 20190219
  Receipt Date: 20190219
  Transmission Date: 20190418
  Serious: Yes (Other)
  Sender: FDA-Public Use
  Company Number: IT-PFIZER INC-2019072152

PATIENT
  Age: 39 Year
  Sex: Male

DRUGS (3)
  1. OKI [Concomitant]
     Active Substance: KETOPROFEN LYSINE
     Indication: UPPER RESPIRATORY TRACT INFECTION
     Dosage: 2 DF, UNK
     Route: 048
  2. AZITHROMYCIN ANHYDROUS. [Suspect]
     Active Substance: AZITHROMYCIN ANHYDROUS
     Indication: PNEUMONIA
     Dosage: 500 MG, UNK
     Route: 048
     Dates: start: 20181206, end: 20181206
  3. AMOXICILLIN/CLAVULANIC ACID [Concomitant]
     Indication: UPPER RESPIRATORY TRACT INFECTION
     Dosage: 3 DF, UNK
     Route: 048

REACTIONS (2)
  - Erythema [Recovered/Resolved]
  - Pruritus [Recovered/Resolved]

NARRATIVE: CASE EVENT DATE: 20181207
